FAERS Safety Report 9723322 (Version 1)
Quarter: 2013Q4

REPORT INFORMATION
  Report Type: Spontaneous
  Country: US (occurrence: US)
  Receive Date: 20131202
  Receipt Date: 20131202
  Transmission Date: 20140711
  Serious: No
  Sender: FDA-Public Use
  Company Number: US-GLAXOSMITHKLINE-A1001316A

PATIENT
  Age: 55 Year
  Sex: Male

DRUGS (3)
  1. FLONASE [Suspect]
     Indication: NASAL OBSTRUCTION
     Route: 045
     Dates: start: 20120912, end: 20120919
  2. VERAMYST [Suspect]
     Indication: NASAL OBSTRUCTION
     Dosage: 1PUFF TWICE PER DAY
     Route: 045
     Dates: start: 20121012, end: 20121015
  3. DEPAKOTE [Concomitant]

REACTIONS (1)
  - Drug ineffective [Recovered/Resolved]
